FAERS Safety Report 15034757 (Version 5)
Quarter: 2019Q3

REPORT INFORMATION
  Report Type: Spontaneous
  Country: US (occurrence: US)
  Receive Date: 20180620
  Receipt Date: 20190819
  Transmission Date: 20191004
  Serious: Yes (Life-Threatening, Hospitalization, Other)
  Sender: FDA-Public Use
  Company Number: US-ACCORD-068473

PATIENT
  Age: 79 Year
  Sex: Female

DRUGS (4)
  1. PREDNISONE. [Concomitant]
     Active Substance: PREDNISONE
     Indication: RHEUMATOID ARTHRITIS
     Dosage: FOR MORE THAN 10 YEARS
  2. METHOTREXATE. [Suspect]
     Active Substance: METHOTREXATE
     Indication: RHEUMATOID ARTHRITIS
     Dosage: FOR MORE THAN 10 YEARS
     Route: 048
     Dates: start: 2007
  3. PREDNISOLONE. [Concomitant]
     Active Substance: PREDNISOLONE
     Indication: RHEUMATOID ARTHRITIS
     Dates: start: 2007
  4. HYDROXYCHLOROQUINE [Concomitant]
     Active Substance: HYDROXYCHLOROQUINE
     Indication: RHEUMATOID ARTHRITIS
     Dosage: FOR MORE THAN 10 YEARS
     Dates: start: 2007

REACTIONS (7)
  - Bronchopleural fistula [Recovered/Resolved]
  - Emphysema [Unknown]
  - Respiratory failure [Unknown]
  - Pneumothorax [Recovering/Resolving]
  - Pleurisy [Unknown]
  - Pulmonary fibrosis [Unknown]
  - Pneumothorax spontaneous [Unknown]

NARRATIVE: CASE EVENT DATE: 201706
